FAERS Safety Report 21848309 (Version 6)
Quarter: 2025Q2

REPORT INFORMATION
  Report Type: Spontaneous
  Country: CZ (occurrence: CZ)
  Receive Date: 20230111
  Receipt Date: 20250529
  Transmission Date: 20250717
  Serious: Yes (Hospitalization, Other)
  Sender: MYLAN
  Company Number: CZ-Accord-287092

PATIENT
  Age: 72 Year
  Sex: Male
  Weight: 80 kg

DRUGS (20)
  1. OXALIPLATIN [Suspect]
     Active Substance: OXALIPLATIN
     Indication: Diffuse large B-cell lymphoma stage II
     Dosage: 100 MG/SQ. METER, Q2W
     Dates: start: 20220907, end: 20220921
  2. GEMCITABINE [Suspect]
     Active Substance: GEMCITABINE
     Indication: Diffuse large B-cell lymphoma stage II
     Dosage: 1000 MG/SQ. METER, BIWEEKLY
     Dates: start: 20220907, end: 20220921
  3. EPCORITAMAB [Suspect]
     Active Substance: EPCORITAMAB
     Indication: Diffuse large B-cell lymphoma stage II
     Dosage: PRIMING DOSE: 0.16MILLIGRAM, SINGLE
     Dates: start: 20220907, end: 20220907
  4. EPCORITAMAB [Suspect]
     Active Substance: EPCORITAMAB
     Dosage: FULL DOSE: 48 MILLIGRAM, WEEKLY
     Dates: start: 20220921, end: 20220929
  5. EPCORITAMAB [Suspect]
     Active Substance: EPCORITAMAB
     Dates: start: 20220914, end: 20220914
  6. SULFAMETHOXAZOLE\TRIMETHOPRIM [Concomitant]
     Active Substance: SULFAMETHOXAZOLE\TRIMETHOPRIM
  7. SOLU-MEDROL [Concomitant]
     Active Substance: METHYLPREDNISOLONE SODIUM SUCCINATE
     Indication: Prophylaxis
     Dates: start: 20220929, end: 20220929
  8. PREDNISONE [Concomitant]
     Active Substance: PREDNISONE
     Indication: Prophylaxis
     Dates: start: 20220930, end: 20221002
  9. Paralen [Concomitant]
     Indication: Premedication
     Dates: start: 20220929, end: 20220929
  10. BISULEPIN [Concomitant]
     Active Substance: BISULEPIN
     Indication: Premedication
     Dates: start: 20220929, end: 20220929
  11. GRANISETRON HYDROCHLORIDE [Concomitant]
     Active Substance: GRANISETRON HYDROCHLORIDE
  12. ALLOPURINOL [Concomitant]
     Active Substance: ALLOPURINOL
     Dates: start: 20220907, end: 20221007
  13. VALACYCLOVIR HYDROCHLORIDE [Concomitant]
     Active Substance: VALACYCLOVIR HYDROCHLORIDE
  14. POTASSIUM CHLORIDE [Concomitant]
     Active Substance: POTASSIUM CHLORIDE
     Dates: start: 20220908, end: 20220917
  15. FILGRASTIM [Concomitant]
     Active Substance: FILGRASTIM
     Dates: start: 20220911, end: 20220913
  16. CONTROLOC [Concomitant]
     Active Substance: PANTOPRAZOLE SODIUM
     Dates: start: 20220907, end: 20220917
  17. SPORANOX [Concomitant]
     Active Substance: ITRACONAZOLE
     Dates: start: 20221114, end: 20221114
  18. SODIUM CHLORIDE [Concomitant]
     Active Substance: SODIUM CHLORIDE
     Dates: start: 20221121, end: 20221214
  19. FLUCONAZOLE [Concomitant]
     Active Substance: FLUCONAZOLE
     Dates: start: 20221115, end: 20221123
  20. ZOLOFT [Concomitant]
     Active Substance: SERTRALINE HYDROCHLORIDE
     Dates: start: 20221114, end: 20221214

REACTIONS (4)
  - COVID-19 pneumonia [Recovered/Resolved]
  - COVID-19 [Recovered/Resolved]
  - Pneumonia [Recovered/Resolved]
  - Off label use [Unknown]

NARRATIVE: CASE EVENT DATE: 20221006
